FAERS Safety Report 17064263 (Version 5)
Quarter: 2021Q2

REPORT INFORMATION
  Report Type: Spontaneous
  Country: US (occurrence: US)
  Receive Date: 20191122
  Receipt Date: 20210517
  Transmission Date: 20210716
  Serious: No
  Sender: FDA-Public Use
  Company Number: US-PFIZER INC-2018421057

PATIENT
  Age: 101 Year
  Sex: Female
  Weight: 65.77 kg

DRUGS (5)
  1. IBRANCE [Suspect]
     Active Substance: PALBOCICLIB
     Indication: METASTASES TO BONE
  2. PRILOSEC [Concomitant]
     Active Substance: OMEPRAZOLE MAGNESIUM
     Indication: HIATUS HERNIA
     Dosage: 20 MG, 1X/DAY
     Route: 048
  3. IBRANCE [Suspect]
     Active Substance: PALBOCICLIB
     Indication: BREAST CANCER METASTATIC
     Dosage: 75 MG, CYCLIC (21 DAYS THEN OFF 7 DAYS)
     Route: 048
     Dates: start: 2017
  4. PRILOSEC [Concomitant]
     Active Substance: OMEPRAZOLE MAGNESIUM
     Indication: ANTACID THERAPY
  5. IBRANCE [Suspect]
     Active Substance: PALBOCICLIB
     Indication: METASTASES TO LUNG

REACTIONS (2)
  - Pain [Not Recovered/Not Resolved]
  - Eye infection [Unknown]
